FAERS Safety Report 9670217 (Version 2)
Quarter: 2013Q4

REPORT INFORMATION
  Report Type: Spontaneous
  Country: IT (occurrence: IT)
  Receive Date: 20131105
  Receipt Date: 20131114
  Transmission Date: 20140711
  Serious: Yes (Other)
  Sender: FDA-Public Use
  Company Number: IT-TEVA-440548ISR

PATIENT
  Age: 88 Year
  Sex: Female

DRUGS (5)
  1. AMOXICILLINA TRIIDRATA/POTASSIO CLAVULANATO [Suspect]
     Indication: PROPHYLAXIS
     Dosage: 2 DOSAGE FORMS DAILY;
     Route: 048
     Dates: start: 20131006, end: 20131006
  2. LEVOPRAID 25MG [Concomitant]
  3. LEXOTAN 2.5MG/ML [Concomitant]
  4. OMEPRAZOLO [Concomitant]
  5. CITALOPRAM [Concomitant]

REACTIONS (2)
  - Erythema [Recovering/Resolving]
  - Syncope [Recovering/Resolving]
